FAERS Safety Report 25817022 (Version 1)
Quarter: 2025Q3

REPORT INFORMATION
  Report Type: Report from Study
  Country: US (occurrence: US)
  Receive Date: 20250918
  Receipt Date: 20250918
  Transmission Date: 20251020
  Serious: Yes (Other)
  Sender: MYLAN
  Company Number: US-MYLANLABS-2025M1078553

PATIENT
  Age: 71 Year
  Sex: Female

DRUGS (5)
  1. PROPRANOLOL [Suspect]
     Active Substance: PROPRANOLOL HYDROCHLORIDE
     Indication: Atrial tachycardia
     Dosage: UNK, BID (40 MG IN THE MORNING AND 20 MG AT NIGHT-TIME)
  2. ATENOLOL [Suspect]
     Active Substance: ATENOLOL
     Indication: Tremor
  3. ESCITALOPRAM [Concomitant]
     Active Substance: ESCITALOPRAM OXALATE
     Indication: Depression
  4. BUPROPION [Concomitant]
     Active Substance: BUPROPION
     Indication: Depression
  5. GABAPENTIN [Concomitant]
     Active Substance: GABAPENTIN
     Indication: Tremor
     Dosage: 600 MILLIGRAM, BID

REACTIONS (3)
  - Drug ineffective for unapproved indication [Unknown]
  - Fatigue [Unknown]
  - Off label use [Unknown]
